FAERS Safety Report 4879628-0 (Version None)
Quarter: 2006Q1

REPORT INFORMATION
  Report Type: 
  Country: None (occurrence: None)
  Receive Date: 20060111
  Receipt Date: 20060101
  Transmission Date: 20060701
  Serious: Yes (Other)
  Sender: FDA-Public Use
  Company Number: 200610040GDS

PATIENT
  Age: 63 Year
  Sex: Female
  Weight: 81.6475 kg

DRUGS (4)
  1. ALEVE [Suspect]
     Indication: PAIN
     Dosage: ORAL
     Route: 048
  2. ROBITUSSIN (GUAIFENESIN) [Suspect]
  3. CELEBREX [Concomitant]
  4. AMITRIPLENE [Concomitant]

REACTIONS (3)
  - DYSARTHRIA [None]
  - GAIT DISTURBANCE [None]
  - INCORRECT DOSE ADMINISTERED [None]
